FAERS Safety Report 9817248 (Version 1)
Quarter: 2014Q1

REPORT INFORMATION
  Report Type: Report from Study
  Country: US (occurrence: US)
  Receive Date: 20140115
  Receipt Date: 20140115
  Transmission Date: 20141002
  Serious: Yes (Death)
  Sender: FDA-Public Use
  Company Number: US-ROCHE-1333467

PATIENT
  Age: 65 Year
  Sex: Female

DRUGS (8)
  1. AVASTIN [Suspect]
     Indication: BREAST CANCER
     Dosage: THE PATIENT RECEIVED THE DOSE WITH SODIUM CHLORIDE 0.9%.
     Route: 042
     Dates: end: 20111220
  2. AVASTIN [Suspect]
     Indication: UTERINE CANCER
  3. AVASTIN [Suspect]
     Indication: CERVIX CARCINOMA
  4. TORISEL [Concomitant]
     Route: 042
  5. TAXOL [Concomitant]
  6. CARBOPLATIN [Concomitant]
  7. NEXAVAR [Concomitant]
  8. NACL .9% [Concomitant]
     Route: 042

REACTIONS (1)
  - Death [Fatal]
